FAERS Safety Report 25445573 (Version 1)
Quarter: 2025Q2

REPORT INFORMATION
  Report Type: Spontaneous
  Country: IL (occurrence: IL)
  Receive Date: 20250617
  Receipt Date: 20250617
  Transmission Date: 20250717
  Serious: Yes (Other)
  Sender: PFIZER
  Company Number: IL-PFIZER INC-PV202500071307

PATIENT

DRUGS (1)
  1. LORLATINIB [Suspect]
     Active Substance: LORLATINIB
     Dosage: 100 MG ONCE A DAY

REACTIONS (5)
  - Diabetes mellitus inadequate control [Unknown]
  - Lipids increased [Unknown]
  - Blood cholesterol increased [Unknown]
  - Depression [Unknown]
  - Intentional dose omission [Unknown]
